FAERS Safety Report 10452637 (Version 1)
Quarter: 2014Q3

REPORT INFORMATION
  Report Type: Spontaneous
  Country: US (occurrence: None)
  Receive Date: 20140912
  Receipt Date: 20140912
  Transmission Date: 20150326
  Serious: Yes (Other)
  Sender: FDA-Public Use
  Company Number: None

PATIENT
  Age: 62 Year
  Sex: Female

DRUGS (1)
  1. HUMIRA [Suspect]
     Active Substance: ADALIMUMAB
     Indication: RHEUMATOID ARTHRITIS
     Route: 058
     Dates: start: 20140829

REACTIONS (8)
  - Pyrexia [None]
  - Swelling face [None]
  - Peripheral swelling [None]
  - Gastric dilatation [None]
  - Diarrhoea [None]
  - Fatigue [None]
  - Urticaria [None]
  - Abdominal pain upper [None]

NARRATIVE: CASE EVENT DATE: 20140827
